FAERS Safety Report 20983204 (Version 1)
Quarter: 2022Q2

REPORT INFORMATION
  Report Type: Spontaneous
  Country: US (occurrence: US)
  Receive Date: 20220620
  Receipt Date: 20220620
  Transmission Date: 20220720
  Serious: Yes (Other)
  Sender: FDA-Public Use
  Company Number: US-JNJFOC-20220624675

PATIENT

DRUGS (4)
  1. DARZALEX [Suspect]
     Active Substance: DARATUMUMAB
     Indication: Plasma cell myeloma
     Route: 065
  2. DARZALEX [Suspect]
     Active Substance: DARATUMUMAB
     Indication: Amyloidosis
  3. BORTEZOMIB [Suspect]
     Active Substance: BORTEZOMIB
     Indication: Plasma cell myeloma
     Route: 065
  4. BORTEZOMIB [Suspect]
     Active Substance: BORTEZOMIB
     Indication: Amyloidosis

REACTIONS (5)
  - Histoplasmosis [Unknown]
  - Legionella infection [Unknown]
  - Pneumocystis jirovecii pneumonia [Unknown]
  - Cytomegalovirus infection reactivation [Unknown]
  - Adenovirus infection [Unknown]

NARRATIVE: CASE EVENT DATE: 20220609
